FAERS Safety Report 23056563 (Version 1)
Quarter: 2023Q4

REPORT INFORMATION
  Report Type: Spontaneous
  Country: NL (occurrence: NL)
  Receive Date: 20231011
  Receipt Date: 20231011
  Transmission Date: 20240110
  Serious: Yes (Hospitalization)
  Sender: FDA-Public Use
  Company Number: NL-CELLTRION INC.-2023NL019309

PATIENT

DRUGS (4)
  1. BEVACIZUMAB [Suspect]
     Active Substance: BEVACIZUMAB
     Indication: Non-small cell lung cancer
     Dosage: LAST DOSE WAS ADMINISTERED ON 18/SEP/2023, CUMULATIVE DOSE: 2300 MG, CYCLE NO. 2
     Route: 042
     Dates: start: 20230810
  2. PACLITAXEL [Suspect]
     Active Substance: PACLITAXEL
     Indication: Non-small cell lung cancer
     Dosage: LAST DOSE WAS ADMINISTERED ON 18/SEP/2023, CUMULATIVE DOSE: 780 MG, CYCLE NO. 2.
     Route: 042
     Dates: start: 20230810
  3. ATEZOLIZUMAB [Suspect]
     Active Substance: ATEZOLIZUMAB
     Indication: Non-small cell lung cancer
     Dosage: LAST CYCLE WAS ADMINISTERED ON 18/SEP/2023, CUMULATIVE DOSE: 2400 MG, CYCLE NO. 2
     Route: 042
     Dates: start: 20230810
  4. CARBOPLATIN [Suspect]
     Active Substance: CARBOPLATIN
     Indication: Non-small cell lung cancer
     Dosage: LAST DOSE WAS ADMINISTERED ON 18/SEP/2023, CUMULATIVE DOSE: 1420, CYCLE NO. 2
     Route: 042
     Dates: start: 20230810

REACTIONS (2)
  - Disease progression [Not Recovered/Not Resolved]
  - Pain [Not Recovered/Not Resolved]

NARRATIVE: CASE EVENT DATE: 20230916
